FAERS Safety Report 15710856 (Version 2)
Quarter: 2019Q1

REPORT INFORMATION
  Report Type: Spontaneous
  Country: US (occurrence: US)
  Receive Date: 20181211
  Receipt Date: 20190218
  Transmission Date: 20190417
  Serious: Yes (Other)
  Sender: FDA-Public Use
  Company Number: US-SA-2018SA334281

PATIENT
  Age: 60 Year
  Sex: Female
  Weight: 113 kg

DRUGS (19)
  1. XELODA [Concomitant]
     Active Substance: CAPECITABINE
  2. CALCIUM [Concomitant]
     Active Substance: CALCIUM
     Dosage: UNK
     Dates: start: 20040101
  3. TAXOTERE [Suspect]
     Active Substance: DOCETAXEL
     Indication: BREAST CANCER FEMALE
     Dosage: 82 MG, Q3W
     Route: 042
     Dates: start: 20040527, end: 20040527
  4. ALBUTEROL [SALBUTAMOL] [Concomitant]
     Active Substance: ALBUTEROL
     Dosage: UNK
     Dates: start: 20040101
  5. ATIVAN [Concomitant]
     Active Substance: LORAZEPAM
  6. FEMARA [Concomitant]
     Active Substance: LETROZOLE
     Dosage: UNK
     Dates: start: 20040101
  7. HYDROCODONE [Concomitant]
     Active Substance: HYDROCODONE
     Dosage: UNK
     Dates: start: 20040101
  8. TAXOTERE [Suspect]
     Active Substance: DOCETAXEL
     Dosage: 82 MG, Q3W
     Route: 042
     Dates: start: 200409, end: 200409
  9. ASPIRIN (E.C.) [Concomitant]
     Active Substance: ASPIRIN
     Dosage: UNK
     Dates: start: 20040101
  10. ATENOLOL. [Concomitant]
     Active Substance: ATENOLOL
     Dosage: UNK
     Dates: start: 19950101
  11. FULVESTRANT. [Concomitant]
     Active Substance: FULVESTRANT
  12. TAXOL [Concomitant]
     Active Substance: PACLITAXEL
  13. LETROZOLE. [Concomitant]
     Active Substance: LETROZOLE
     Dosage: UNK
     Dates: start: 20040101
  14. APIXABAN [Concomitant]
     Active Substance: APIXABAN
  15. CELEBREX [Concomitant]
     Active Substance: CELECOXIB
     Dosage: UNK
     Dates: start: 20040101
  16. CLARITIN [CLARITHROMYCIN] [Concomitant]
     Active Substance: CLARITHROMYCIN
     Dosage: UNK
     Dates: start: 19900101
  17. ABRAXANE [Concomitant]
     Active Substance: PACLITAXEL
  18. ATORVASTATIN [Concomitant]
     Active Substance: ATORVASTATIN
  19. OMEPRAZOLE. [Concomitant]
     Active Substance: OMEPRAZOLE
     Dosage: UNK
     Dates: start: 20040101

REACTIONS (1)
  - Alopecia [Not Recovered/Not Resolved]

NARRATIVE: CASE EVENT DATE: 20050331
